FAERS Safety Report 8134883-9 (Version None)
Quarter: 2012Q1

REPORT INFORMATION
  Report Type: 
  Country: None (occurrence: None)
  Receive Date: 20120214
  Receipt Date: 20120209
  Transmission Date: 20120608
  Serious: Yes (Hospitalization, Other)
  Sender: FDA-Public Use
  Company Number: US-PFIZER INC-2011267425

PATIENT
  Sex: Male

DRUGS (1)
  1. CHANTIX [Suspect]
     Indication: SMOKING CESSATION THERAPY
     Dosage: STARTER PACK, WITH CONTINUOUS PACKS
     Dates: start: 20081001, end: 20081101

REACTIONS (4)
  - JOINT INJURY [None]
  - FALL [None]
  - ROTATOR CUFF SYNDROME [None]
  - LOSS OF CONSCIOUSNESS [None]
